FAERS Safety Report 9904230 (Version 1)
Quarter: 2014Q1

REPORT INFORMATION
  Report Type: Not Available
  Country: FR (occurrence: FR)
  Receive Date: 20140218
  Receipt Date: 20140218
  Transmission Date: 20141002
  Serious: Yes (Hospitalization)
  Sender: FDA-Public Use
  Company Number: FR-BEH-2014040615

PATIENT
  Age: 62 Year
  Sex: Female

DRUGS (1)
  1. PRIVIGEN [Suspect]
     Indication: RAYNAUD^S PHENOMENON
     Dosage: 200ML IN 1 HOUR
     Route: 042
     Dates: start: 20140127, end: 20140127

REACTIONS (5)
  - Abdominal pain [Recovered/Resolved]
  - Erythema [Recovered/Resolved]
  - Vomiting [Recovered/Resolved]
  - Diarrhoea [Recovered/Resolved]
  - Tachycardia [Recovered/Resolved]
